FAERS Safety Report 5800505-2 (Version None)
Quarter: 2008Q3

REPORT INFORMATION
  Report Type: 
  Country: None (occurrence: None)
  Receive Date: 20080703
  Receipt Date: 20080625
  Transmission Date: 20090109
  Serious: Yes (Other)
  Sender: FDA-Public Use
  Company Number: B0527087A

PATIENT
  Age: 10 Month
  Sex: Male

DRUGS (1)
  1. VENTOLIN [Suspect]
     Indication: BRONCHIOLITIS
     Dosage: 1PUFF THREE TIMES PER DAY
     Route: 055
     Dates: start: 20080623, end: 20080623

REACTIONS (3)
  - CONVULSION [None]
  - EYE DISORDER [None]
  - HYPERTONIA [None]
